FAERS Safety Report 9201059 (Version 1)
Quarter: 2013Q2

REPORT INFORMATION
  Report Type: Spontaneous
  Country: US (occurrence: US)
  Receive Date: 20130401
  Receipt Date: 20130410
  Transmission Date: 20140414
  Serious: Yes (Hospitalization)
  Sender: FDA-Public Use
  Company Number: US-BAYER-2013-040801

PATIENT
  Age: 85 Year
  Sex: Female
  Weight: 109 kg

DRUGS (15)
  1. XARELTO [Suspect]
     Indication: CEREBROVASCULAR ACCIDENT PROPHYLAXIS
     Dosage: 20 MG, QD
     Route: 048
  2. XARELTO [Interacting]
     Indication: ATRIAL FIBRILLATION
  3. MELOXICAM [Suspect]
     Indication: PAIN
     Dosage: 15 MG, UNK
     Route: 048
  4. ACETYLSALICYLIC ACID({=100 MG) [Interacting]
     Dosage: 81 MG, UNK
     Route: 048
  5. HYDRALAZINE [Concomitant]
     Dosage: 100 MG, BID
     Route: 048
  6. NORCO [Concomitant]
     Indication: PAIN
  7. NORCO [Concomitant]
     Indication: PAIN
     Route: 048
  8. ATORVASTATIN [Concomitant]
     Dosage: 20 MG, UNK
     Route: 048
  9. SENNA [Concomitant]
     Dosage: 8.6 MG, BID
     Route: 048
  10. FUROSEMIDE [Concomitant]
     Dosage: 40 MG, BID
     Route: 048
  11. MULTIVITAMINS W/MINERALS [Concomitant]
     Route: 048
  12. COLECALCIFEROL [Concomitant]
     Dosage: 1000 IU, UNK
     Route: 048
  13. OYSTER SHELL CALCIUM WITH VITAMIN D [CALCIUM CARBONATE,COLECALCIFE [Concomitant]
     Route: 048
  14. METAMUCIL [Concomitant]
  15. METAMUCIL [Concomitant]
     Route: 048

REACTIONS (16)
  - Syncope [Unknown]
  - Gastric ulcer [Unknown]
  - Renal impairment [Unknown]
  - Haemoglobin decreased [Unknown]
  - Haematochezia [Unknown]
  - Gastrointestinal haemorrhage [Recovering/Resolving]
  - Haemorrhoids [None]
  - Blood albumin decreased [None]
  - Blood pressure diastolic decreased [None]
  - Creatinine renal clearance decreased [None]
  - Heart rate decreased [None]
  - Blood creatinine increased [None]
  - Gastritis erosive [None]
  - Diverticulum intestinal [None]
  - Gastric mucosal hypertrophy [None]
  - Ulcer haemorrhage [None]
